FAERS Safety Report 8010642 (Version 3)
Quarter: 2014Q2

REPORT INFORMATION
  Report Type: Spontaneous
  Country: CN (occurrence: CN)
  Receive Date: 20110627
  Receipt Date: 20140407
  Transmission Date: 20141212
  Serious: Yes (Hospitalization, Other)
  Sender: FDA-Public Use
  Company Number: CN-JNJFOC-20110607453

PATIENT
  Age: 31 Year
  Sex: Female

DRUGS (2)
  1. SPORANOX [Suspect]
     Indication: PRURITUS
     Route: 048
     Dates: start: 20110603, end: 20110610
  2. SPORANOX [Suspect]
     Indication: PRURITUS
     Route: 048
     Dates: start: 20110612

REACTIONS (2)
  - Gingival ulceration [Recovering/Resolving]
  - Pain in extremity [Recovering/Resolving]
